FAERS Safety Report 9223477 (Version 1)
Quarter: 2013Q2

REPORT INFORMATION
  Report Type: Spontaneous
  Country: GB (occurrence: GB)
  Receive Date: 20130410
  Receipt Date: 20130410
  Transmission Date: 20140414
  Serious: Yes (Hospitalization)
  Sender: FDA-Public Use
  Company Number: GB-BANPHARM-20131125

PATIENT
  Age: 60 Year
  Sex: Male

DRUGS (3)
  1. IBUPROFEN UNKNOWN PRODUCT [Suspect]
     Dosage: 1 DF, ONCE,
  2. GLIBENCLAMIDE [Suspect]
     Dosage: 1 DF, ONCE,
  3. METFORMIN [Suspect]
     Dosage: 1 DF, ONCE,

REACTIONS (4)
  - Apnoea [Recovered/Resolved]
  - Lactic acidosis [Recovered/Resolved]
  - Ventricular fibrillation [Recovered/Resolved]
  - Overdose [Recovered/Resolved]
